FAERS Safety Report 7410388-5 (Version None)
Quarter: 2011Q2

REPORT INFORMATION
  Report Type: 
  Country: None (occurrence: None)
  Receive Date: 20110412
  Receipt Date: 20110329
  Transmission Date: 20111010
  Serious: Yes (Death)
  Sender: FDA-Public Use
  Company Number: US-CELGENEUS-163-21880-11032175

PATIENT
  Sex: Female

DRUGS (11)
  1. POTASSIM CHLORIDE [Concomitant]
     Route: 065
  2. FAMOTIDINE [Concomitant]
     Route: 065
  3. DOCUSATE [Concomitant]
     Route: 065
  4. BIAXIN [Concomitant]
     Indication: MULTIPLE MYELOMA
     Route: 065
     Dates: start: 20100101
  5. REVLIMID [Suspect]
     Indication: MULTIPLE MYELOMA
     Route: 048
     Dates: start: 20060401, end: 20080501
  6. ALENDRONATE SODIUM [Concomitant]
     Route: 065
  7. FLUOXETINE [Concomitant]
     Route: 065
  8. TRAZODONE [Concomitant]
     Route: 065
  9. DEXAMETHASONE [Concomitant]
     Indication: MULTIPLE MYELOMA
     Route: 065
     Dates: start: 20100101
  10. REVLIMID [Suspect]
     Dosage: 10 MILLIGRAM
     Route: 048
     Dates: start: 20100101, end: 20100401
  11. PREDNISOLONE [Concomitant]
     Route: 065

REACTIONS (1)
  - MULTIPLE MYELOMA [None]
